FAERS Safety Report 22052479 (Version 2)
Quarter: 2023Q1

REPORT INFORMATION
  Report Type: Spontaneous
  Country: US (occurrence: US)
  Receive Date: 20230302
  Receipt Date: 20230313
  Transmission Date: 20230418
  Serious: Yes (Hospitalization, Other)
  Sender: FDA-Public Use
  Company Number: None

PATIENT
  Age: 6 Year
  Sex: Male

DRUGS (4)
  1. ASPIRIN [Suspect]
     Active Substance: ASPIRIN
     Indication: Product used for unknown indication
     Dosage: UNK
     Route: 065
  2. ASPIRIN [Suspect]
     Active Substance: ASPIRIN
     Dosage: 324 MILLIGRAM (CUMULATIVE DOSE)
     Route: 048
  3. IBUPROFEN [Suspect]
     Active Substance: IBUPROFEN
     Indication: Pyrexia
     Dosage: UNK
     Route: 048
  4. IBUPROFEN [Suspect]
     Active Substance: IBUPROFEN
     Dosage: 240 MILLIGRAM
     Route: 048

REACTIONS (11)
  - Anaphylactic reaction [Unknown]
  - Nasal congestion [Recovered/Resolved]
  - Throat irritation [Unknown]
  - Angioedema [Recovered/Resolved]
  - Eye swelling [Unknown]
  - Lip swelling [Unknown]
  - Oropharyngeal discomfort [Recovered/Resolved]
  - Pruritus [Recovered/Resolved]
  - Cough [Recovering/Resolving]
  - Throat clearing [Unknown]
  - Eye pruritus [Unknown]
